FAERS Safety Report 6718252-1 (Version None)
Quarter: 2010Q2

REPORT INFORMATION
  Report Type: 
  Country: None (occurrence: None)
  Receive Date: 20100505
  Receipt Date: 20100427
  Transmission Date: 20101027
  Serious: Yes (Other)
  Sender: FDA-Public Use
  Company Number: 20108609

PATIENT
  Sex: Male

DRUGS (1)
  1. LIORESAL [Suspect]
     Indication: MUSCLE SPASTICITY
     Dosage: 700 MCG, DAILY, INTRATHECAL
     Route: 037

REACTIONS (9)
  - ABDOMINAL DISTENSION [None]
  - HYPOPHAGIA [None]
  - MUSCULOSKELETAL DISORDER [None]
  - NAUSEA [None]
  - PRURITUS [None]
  - PYREXIA [None]
  - TREMOR [None]
  - UNDERDOSE [None]
  - VOMITING [None]
